FAERS Safety Report 4774582-4 (Version None)
Quarter: 2005Q3

REPORT INFORMATION
  Report Type: 
  Country: None (occurrence: None)
  Receive Date: 20050921
  Receipt Date: 20050913
  Transmission Date: 20060218
  Serious: Yes (Hospitalization)
  Sender: FDA-Public Use
  Company Number: PHBS2005SE13440

PATIENT
  Age: 59 Year
  Sex: Female

DRUGS (3)
  1. VOLTAREN [Suspect]
     Indication: ENCEPHALITIS
     Dosage: 150 MG, QD
     Route: 048
     Dates: end: 20050616
  2. GEAVIR [Suspect]
     Dosage: 10 MG/KG, UNK
     Route: 042
     Dates: start: 20050613, end: 20050617
  3. ASPIRIN [Concomitant]
     Dosage: 75 MG, UNK
     Route: 048

REACTIONS (8)
  - ASTHENIA [None]
  - BLOOD CREATININE INCREASED [None]
  - DYSARTHRIA [None]
  - FACIAL PARESIS [None]
  - FALL [None]
  - HYPERSENSITIVITY [None]
  - PYREXIA [None]
  - RENAL FAILURE [None]
